FAERS Safety Report 24125670 (Version 1)
Quarter: 2024Q3

REPORT INFORMATION
  Report Type: Spontaneous
  Country: US (occurrence: None)
  Receive Date: 20240722
  Receipt Date: 20240722
  Transmission Date: 20241016
  Serious: No
  Sender: Public
  Company Number: None

PATIENT
  Sex: Female

DRUGS (2)
  1. DEFEROXAMINE MESYLATE [Suspect]
     Active Substance: DEFEROXAMINE MESYLATE
     Indication: Haemochromatosis
     Dosage: FREQUENCY : 3 TIMES A WEEK;?
     Route: 042
     Dates: start: 202402
  2. ADAKVEDO SDV [Concomitant]

REACTIONS (4)
  - Blood pressure increased [None]
  - Haemoglobin decreased [None]
  - Transfusion [None]
  - Infusion related reaction [None]
